FAERS Safety Report 4866632-1 (Version None)
Quarter: 2005Q4

REPORT INFORMATION
  Report Type: 
  Country: None (occurrence: None)
  Receive Date: 20051227
  Receipt Date: 20051216
  Transmission Date: 20060501
  Serious: Yes (Death)
  Sender: FDA-Public Use
  Company Number: US-JNJFOC-20051204949

PATIENT
  Age: 95 Year
  Sex: Female

DRUGS (1)
  1. FENTANYL [Suspect]
     Route: 062

REACTIONS (1)
  - DEATH [None]
